FAERS Safety Report 9458697 (Version 1)
Quarter: 2013Q3

REPORT INFORMATION
  Report Type: Report from Study
  Country: None (occurrence: US)
  Receive Date: 20130814
  Receipt Date: 20130814
  Transmission Date: 20140515
  Serious: Yes (Hospitalization, Other)
  Sender: FDA-Public Use
  Company Number: US-ABBOTT-13P-163-1129803-00

PATIENT
  Sex: Male
  Weight: 95.34 kg

DRUGS (7)
  1. HUMIRA [Suspect]
     Indication: PSORIATIC ARTHROPATHY
     Route: 058
     Dates: start: 2009, end: 201212
  2. HUMIRA [Suspect]
     Indication: PSORIASIS
     Dates: start: 201306
  3. FOLIC ACID [Concomitant]
     Indication: PRODUCT USED FOR UNKNOWN INDICATION
  4. METHOTREXATE [Concomitant]
     Indication: PSORIATIC ARTHROPATHY
  5. NEXIUM [Concomitant]
     Indication: GASTROOESOPHAGEAL REFLUX DISEASE
  6. RAMIPRIL [Concomitant]
     Indication: HYPERTENSION
  7. VITAMIN D NOS [Concomitant]
     Indication: VITAMIN D DECREASED

REACTIONS (2)
  - Intestinal obstruction [Unknown]
  - Anorectal disorder [Unknown]
